FAERS Safety Report 4308087-1 (Version None)
Quarter: 2004Q1

REPORT INFORMATION
  Report Type: 
  Country: None (occurrence: None)
  Receive Date: 20040301
  Receipt Date: 20030502
  Transmission Date: 20041129
  Serious: No
  Sender: FDA-Public Use
  Company Number: US-BRISTOL-MYERS SQUIBB COMPANY-12262689

PATIENT
  Age: 59 Year
  Sex: Female
  Weight: 71 kg

DRUGS (4)
  1. METFORMIN HCL [Suspect]
     Indication: DIABETES MELLITUS
     Route: 048
  2. GLYBURIDE [Concomitant]
  3. CEPHALEXIN [Concomitant]
  4. PREMARIN [Concomitant]

REACTIONS (5)
  - DYSPHAGIA [None]
  - LYMPHADENOPATHY [None]
  - PAIN IN EXTREMITY [None]
  - PARAESTHESIA [None]
  - TINNITUS [None]
